FAERS Safety Report 25517458 (Version 1)
Quarter: 2025Q3

REPORT INFORMATION
  Report Type: Report from Study
  Country: EU (occurrence: EU)
  Receive Date: 20250704
  Receipt Date: 20250704
  Transmission Date: 20251021
  Serious: Yes (Death, Other)
  Sender: ROCHE
  Company Number: EU-ROCHE-10000326575

PATIENT

DRUGS (1)
  1. TOCILIZUMAB [Suspect]
     Active Substance: TOCILIZUMAB
     Indication: Rheumatoid arthritis
     Route: 065

REACTIONS (6)
  - Neoplasm malignant [Fatal]
  - Breast cancer [Unknown]
  - Renal cancer [Unknown]
  - Prostate cancer [Unknown]
  - Lung neoplasm malignant [Unknown]
  - Pancreatic carcinoma [Unknown]
